FAERS Safety Report 17489057 (Version 1)
Quarter: 2020Q1

REPORT INFORMATION
  Report Type: Spontaneous
  Country: US (occurrence: US)
  Receive Date: 20200303
  Receipt Date: 20200303
  Transmission Date: 20200409
  Serious: Yes (Hospitalization)
  Sender: FDA-Public Use
  Company Number: None

PATIENT
  Age: 53 Year

DRUGS (13)
  1. ONDANSETRON [Concomitant]
     Active Substance: ONDANSETRON
     Dates: start: 20151023
  2. TRAMADOL HCL [Concomitant]
     Active Substance: TRAMADOL HYDROCHLORIDE
     Dates: start: 20151023
  3. BIOTIN [Concomitant]
     Active Substance: BIOTIN
     Dates: start: 20151023
  4. CALCIFEROL [Concomitant]
     Dates: start: 20151023
  5. CRANBERRY. [Concomitant]
     Active Substance: CRANBERRY
     Dates: start: 20151023
  6. DALFAMPRIDINE. [Suspect]
     Active Substance: DALFAMPRIDINE
     Indication: MULTIPLE SCLEROSIS
     Dosage: ?          OTHER FREQUENCY:EVERY 12 HOURS;?
     Route: 048
     Dates: start: 20181120
  7. AZELASTINE. [Concomitant]
     Active Substance: AZELASTINE HYDROCHLORIDE
     Dates: start: 20190208
  8. VITA-PLUS E [Concomitant]
     Dates: start: 20151023
  9. FISH OIL [Concomitant]
     Active Substance: FISH OIL
     Dates: start: 20151023
  10. MONTELUKAST [Concomitant]
     Active Substance: MONTELUKAST SODIUM
     Dates: start: 20190228
  11. VITAMIN B12 [Concomitant]
     Active Substance: CYANOCOBALAMIN
     Dates: start: 20151023
  12. FLONASE ALGY [Concomitant]
     Dates: start: 20190208
  13. VENLAFAXINE [Concomitant]
     Active Substance: VENLAFAXINE HYDROCHLORIDE
     Dates: start: 20151023

REACTIONS (2)
  - Meniscus injury [None]
  - Fall [None]
